FAERS Safety Report 7967756-2 (Version None)
Quarter: 2011Q4

REPORT INFORMATION
  Report Type: 
  Country: None (occurrence: None)
  Receive Date: 20111122
  Receipt Date: 20110616
  Transmission Date: 20120403
  Serious: No
  Sender: FDA-Public Use
  Company Number: PHHY2011US54708

PATIENT

DRUGS (1)
  1. GILENYA [Suspect]

REACTIONS (1)
  - INJURY [None]
